FAERS Safety Report 7783199-9 (Version None)
Quarter: 2011Q3

REPORT INFORMATION
  Report Type: 
  Country: None (occurrence: None)
  Receive Date: 20110928
  Receipt Date: 20110916
  Transmission Date: 20111222
  Serious: Yes (Hospitalization)
  Sender: FDA-Public Use
  Company Number: GB-SANOFI-AVENTIS-2011SA060779

PATIENT
  Age: 63 Year
  Sex: Male

DRUGS (1)
  1. MULTAQ [Suspect]
     Route: 065
     Dates: end: 20110707

REACTIONS (2)
  - RESPIRATORY TRACT INFECTION [None]
  - ATRIAL FLUTTER [None]
